FAERS Safety Report 4722141-1 (Version None)
Quarter: 2005Q3

REPORT INFORMATION
  Report Type: 
  Country: None (occurrence: None)
  Receive Date: 20050722
  Receipt Date: 20040805
  Transmission Date: 20060218
  Serious: No
  Sender: FDA-Public Use
  Company Number: US-GLAXOSMITHKLINE-A0521120A

PATIENT
  Age: 76 Year
  Sex: Female

DRUGS (10)
  1. AVANDIA [Suspect]
     Dosage: 6MG PER DAY
     Route: 048
  2. PREMARIN [Concomitant]
  3. LISINOPRIL [Concomitant]
  4. SYNTHROID [Concomitant]
  5. LOVASTATIN [Concomitant]
  6. VERAPAMIL [Concomitant]
  7. IMODIUM [Concomitant]
  8. HYOSCYAMINE [Concomitant]
  9. GARLIC [Concomitant]
  10. CALCIUM GLUCONATE [Concomitant]

REACTIONS (3)
  - BLOOD GLUCOSE INCREASED [None]
  - JOINT SWELLING [None]
  - WEIGHT INCREASED [None]
